FAERS Safety Report 12068011 (Version 1)
Quarter: 2016Q1

REPORT INFORMATION
  Report Type: Spontaneous
  Country: CA (occurrence: CA)
  Receive Date: 20160210
  Receipt Date: 20160210
  Transmission Date: 20160526
  Serious: Yes (Death)
  Sender: FDA-Public Use
  Company Number: CA-JNJFOC-20160204815

PATIENT
  Age: 75 Year
  Sex: Female

DRUGS (1)
  1. TYLENOL EXTRA STRENGTH [Suspect]
     Active Substance: ACETAMINOPHEN
     Indication: CANCER PAIN
     Route: 048

REACTIONS (5)
  - Off label use [Unknown]
  - Pancreatic carcinoma [Fatal]
  - Therapeutic response unexpected [Unknown]
  - Product use issue [Unknown]
  - Expired product administered [Unknown]
